FAERS Safety Report 8453344-0 (Version None)
Quarter: 2012Q2

REPORT INFORMATION
  Report Type: 
  Country: None (occurrence: None)
  Receive Date: 20120620
  Receipt Date: 20120513
  Transmission Date: 20120825
  Serious: No
  Sender: FDA-Public Use
  Company Number: US-VERTEX PHARMACEUTICALS INC.-AE-2012-007077

PATIENT
  Sex: Male
  Weight: 81.72 kg

DRUGS (10)
  1. INCIVEK [Suspect]
     Indication: HEPATITIS C
     Route: 048
     Dates: start: 20120509
  2. PERCODAN [Concomitant]
     Indication: PAIN
     Route: 048
  3. OXYCODONE HCL [Concomitant]
     Indication: PAIN
     Route: 048
  4. MILK THISTLE [Concomitant]
     Route: 048
  5. RIBAVIRIN [Concomitant]
     Indication: HEPATITIS C
     Route: 048
     Dates: start: 20120509
  6. TOPAMAX [Concomitant]
     Indication: EPILEPSY
     Route: 048
  7. PEGASYS [Concomitant]
     Indication: HEPATITIS C
     Route: 058
     Dates: start: 20120509
  8. LAMICTAL [Concomitant]
     Indication: EPILEPSY
     Route: 048
  9. DICLOFENAC/BACLOFEN/CYCLOBENZAPRINE/TETRACAINE [Concomitant]
     Indication: SPINAL PAIN
     Route: 061
  10. ZOLOFT [Concomitant]
     Indication: DEPRESSION
     Route: 048

REACTIONS (3)
  - RASH ERYTHEMATOUS [None]
  - INFLUENZA LIKE ILLNESS [None]
  - ANAL PRURITUS [None]
